FAERS Safety Report 5362044-5 (Version None)
Quarter: 2007Q2

REPORT INFORMATION
  Report Type: 
  Country: None (occurrence: None)
  Receive Date: 20070614
  Receipt Date: 20070416
  Transmission Date: 20071010
  Serious: Yes (Death, Other)
  Sender: FDA-Public Use
  Company Number: 6033637

PATIENT
  Age: 60 Year
  Sex: Male

DRUGS (2)
  1. FLUOXETINE [Suspect]
     Indication: DEPRESSION
     Dates: start: 19900101
  2. PAROXETINE [Suspect]
     Indication: ANXIETY
     Dosage: 20 MG (20 MG, 1 IN 1 D) ORAL
     Route: 048
     Dates: start: 19980101

REACTIONS (8)
  - AGITATION [None]
  - ANXIETY DISORDER [None]
  - COMPLETED SUICIDE [None]
  - GUN SHOT WOUND [None]
  - HALLUCINATION [None]
  - HEAD INJURY [None]
  - HOMICIDE [None]
  - RESTLESSNESS [None]
